FAERS Safety Report 7097561-3 (Version None)
Quarter: 2010Q4

REPORT INFORMATION
  Report Type: 
  Country: None (occurrence: None)
  Receive Date: 20101111
  Receipt Date: 20101102
  Transmission Date: 20110411
  Serious: Yes (Other)
  Sender: FDA-Public Use
  Company Number: DE-B.I. PHARMACEUTICALS,INC./RIDGEFIELD-2010-DE-05978DE

PATIENT
  Sex: Male

DRUGS (3)
  1. SIFROL 0,088 MG [Suspect]
     Dosage: 0.088 MG
     Route: 048
  2. LYRICA [Suspect]
     Dosage: 75 MG
     Route: 048
  3. ATARAX [Suspect]
     Dosage: 1 ANZ
     Route: 048

REACTIONS (2)
  - DRUG INTERACTION [None]
  - MEDICATION ERROR [None]
